FAERS Safety Report 8884250 (Version 2)
Quarter: 2013Q1

REPORT INFORMATION
  Report Type: Spontaneous
  Country: CA (occurrence: CA)
  Receive Date: 20121102
  Receipt Date: 20130215
  Transmission Date: 20140127
  Serious: Yes (Other)
  Sender: FDA-Public Use
  Company Number: CA-NAPPMUNDI-CAN-2012-0003457

PATIENT
  Sex: Female

DRUGS (1)
  1. BUTRANS [Suspect]
     Indication: PAIN
     Dosage: 20 MCG, Q1H
     Route: 062
     Dates: start: 201202, end: 201210

REACTIONS (6)
  - Application site burn [Unknown]
  - Application site vesicles [Unknown]
  - Application site pain [Unknown]
  - Application site pruritus [Unknown]
  - Application site rash [Unknown]
  - Drug ineffective [None]
